FAERS Safety Report 17255489 (Version 3)
Quarter: 2020Q1

REPORT INFORMATION
  Report Type: Report from Study
  Country: FR (occurrence: FR)
  Receive Date: 20200110
  Receipt Date: 20200203
  Transmission Date: 20200409
  Serious: Yes (Hospitalization)
  Sender: FDA-Public Use
  Company Number: FR-ROCHE-2518595

PATIENT
  Age: 60 Year
  Sex: Male
  Weight: 90 kg

DRUGS (10)
  1. IDELALISIB [Suspect]
     Active Substance: IDELALISIB
     Indication: WALDENSTROM^S MACROGLOBULINAEMIA
     Dosage: CYCLE 1 DAY 1
     Route: 048
     Dates: start: 20171214
  2. IDELALISIB [Suspect]
     Active Substance: IDELALISIB
     Dosage: CYCLE 2 DAY 1
     Route: 048
     Dates: start: 20180111
  3. IDELALISIB [Suspect]
     Active Substance: IDELALISIB
     Dosage: CYCLE 5 DAY 1
     Route: 048
     Dates: start: 20180410
  4. OBINUTUZUMAB. [Suspect]
     Active Substance: OBINUTUZUMAB
     Dosage: CYCLE 4 DAY 1
     Route: 042
     Dates: start: 20180313, end: 20180313
  5. OBINUTUZUMAB. [Suspect]
     Active Substance: OBINUTUZUMAB
     Dosage: CYCLE 5 DAY 1
     Route: 042
     Dates: start: 20180410, end: 20180410
  6. OBINUTUZUMAB. [Suspect]
     Active Substance: OBINUTUZUMAB
     Indication: CHRONIC LYMPHOCYTIC LEUKAEMIA
     Dosage: CYCLE 1 DAY 1
     Route: 042
     Dates: start: 20171214
  7. OBINUTUZUMAB. [Suspect]
     Active Substance: OBINUTUZUMAB
     Dosage: CYCLE 3 DAY 1
     Route: 042
     Dates: start: 20180208, end: 20180208
  8. IDELALISIB [Suspect]
     Active Substance: IDELALISIB
     Dosage: CYCLE 4 DAY 1
     Route: 048
     Dates: start: 20180313
  9. OBINUTUZUMAB. [Suspect]
     Active Substance: OBINUTUZUMAB
     Dosage: CYCLE 2 DAY 1
     Route: 042
     Dates: start: 20180111, end: 20180111
  10. IDELALISIB [Suspect]
     Active Substance: IDELALISIB
     Dosage: CYCLE 3 DAY 1
     Route: 048
     Dates: start: 20180208

REACTIONS (1)
  - Glioblastoma [Not Recovered/Not Resolved]

NARRATIVE: CASE EVENT DATE: 20191118
